FAERS Safety Report 19880781 (Version 1)
Quarter: 2021Q3

REPORT INFORMATION
  Report Type: Spontaneous
  Country: US (occurrence: US)
  Receive Date: 20210925
  Receipt Date: 20210925
  Transmission Date: 20211014
  Serious: Yes (Other)
  Sender: FDA-Public Use
  Company Number: NVSC2021US214350

PATIENT
  Sex: Female

DRUGS (1)
  1. ENTRESTO [Suspect]
     Active Substance: SACUBITRIL\VALSARTAN
     Indication: PRODUCT USED FOR UNKNOWN INDICATION
     Dosage: UNK UNK, BID(24 26)
     Route: 065

REACTIONS (6)
  - Loss of consciousness [Unknown]
  - Bundle branch block left [Unknown]
  - Dilatation atrial [Unknown]
  - Tremor [Unknown]
  - Gait inability [Unknown]
  - Head discomfort [Unknown]
